FAERS Safety Report 9500823 (Version 1)
Quarter: 2013Q1

REPORT INFORMATION
  Report Type: Spontaneous
  Country: US (occurrence: None)
  Receive Date: 20130110
  Receipt Date: 20130110
  Transmission Date: 20140127
  Serious: Yes (Hospitalization)
  Sender: FDA-Public Use
  Company Number: 2011BH038559

PATIENT
  Age: 18 Year
  Sex: Male
  Weight: 75.91 kg

DRUGS (4)
  1. VANCOMYCIN [Suspect]
     Indication: PNEUMONIA
     Route: 042
     Dates: start: 20111130, end: 20111130
  2. HEPARIN (HEPARIN) (SOLUTION FOR INJECTION) [Concomitant]
  3. ALBUTEROL [Concomitant]
  4. ZITHROMAX Z-PAK (AZITHROMYCIN) (SOLUTION FOR INFUSION) [Concomitant]

REACTIONS (2)
  - Blood creatinine increased [None]
  - Blood urea increased [None]
